FAERS Safety Report 8857221 (Version 4)
Quarter: 2013Q1

REPORT INFORMATION
  Report Type: Spontaneous
  Country: JP (occurrence: JP)
  Receive Date: 20121024
  Receipt Date: 20130102
  Transmission Date: 20140127
  Serious: Yes (Hospitalization, Other)
  Sender: FDA-Public Use
  Company Number: JP-ELI_LILLY_AND_COMPANY-JP201209000327

PATIENT
  Age: 65 Year
  Sex: Female

DRUGS (2)
  1. FORTEO [Suspect]
     Dosage: UNK
     Route: 058
     Dates: start: 20120704
  2. TRAMACET [Concomitant]
     Dosage: UNK
     Dates: start: 201208

REACTIONS (14)
  - Retinal detachment [Unknown]
  - Malaise [Unknown]
  - Visual acuity reduced [Unknown]
  - Visual impairment [Unknown]
  - Weight increased [Unknown]
  - Central obesity [Unknown]
  - Abdominal pain upper [Unknown]
  - Constipation [Not Recovered/Not Resolved]
  - Constipation [Unknown]
  - Intestinal haemorrhage [Unknown]
  - Intestinal stenosis [Unknown]
  - Asthenopia [Unknown]
  - Nausea [Unknown]
  - Nausea [Unknown]
